FAERS Safety Report 8571633 (Version 6)
Quarter: 2013Q2

REPORT INFORMATION
  Report Type: Spontaneous
  Country: US (occurrence: US)
  Receive Date: 20120521
  Receipt Date: 20130625
  Transmission Date: 20140414
  Serious: Yes (Death, Hospitalization, Disabling, Other)
  Sender: FDA-Public Use
  Company Number: US-009507513-1205USA02879

PATIENT
  Sex: Female
  Weight: 53.61 kg

DRUGS (3)
  1. FOSAMAX [Suspect]
     Indication: OSTEOPOROSIS
     Dosage: 10 MG, UNK
     Route: 048
     Dates: start: 20000529, end: 20010424
  2. FOSAMAX [Suspect]
     Indication: OSTEOPOROSIS
     Dosage: 70 MG, QW
     Route: 048
     Dates: start: 20010424, end: 20030413
  3. FOSAMAX PLUS D [Suspect]
     Indication: OSTEOPOROSIS
     Dosage: 70 MG, QW
     Route: 048
     Dates: start: 20080422, end: 20080622

REACTIONS (26)
  - Fall [Not Recovered/Not Resolved]
  - Intramedullary rod insertion [Not Recovered/Not Resolved]
  - Open reduction of fracture [Recovered/Resolved]
  - Osteoporosis [Not Recovered/Not Resolved]
  - Stress fracture [Not Recovered/Not Resolved]
  - Death [Fatal]
  - Low turnover osteopathy [Not Recovered/Not Resolved]
  - Femur fracture [Recovered/Resolved]
  - Femur fracture [Recovered/Resolved]
  - Fall [Unknown]
  - Impaired healing [Unknown]
  - Fractured sacrum [Unknown]
  - Osteopenia [Unknown]
  - Bone disorder [Unknown]
  - Enchondroma [Unknown]
  - Spinal osteoarthritis [Not Recovered/Not Resolved]
  - Phlebolith [Unknown]
  - Fall [Unknown]
  - Muscle strain [Unknown]
  - Ligament sprain [Unknown]
  - Hypertension [Unknown]
  - Spinal compression fracture [Unknown]
  - Cholelithiasis [Unknown]
  - Aortic arteriosclerosis [Unknown]
  - Fracture delayed union [Recovered/Resolved]
  - Bone pain [Unknown]
